FAERS Safety Report 7385054-5 (Version None)
Quarter: 2011Q1

REPORT INFORMATION
  Report Type: 
  Country: None (occurrence: None)
  Receive Date: 20110330
  Receipt Date: 20110329
  Transmission Date: 20110831
  Serious: Yes (Death)
  Sender: FDA-Public Use
  Company Number: IL-ROXANE LABORATORIES, INC.-2011-RO-00420RO

PATIENT
  Age: 39 Year
  Sex: Female

DRUGS (3)
  1. MORPHINE [Suspect]
     Indication: DYSPNOEA
  2. METHOTRIMEPRAZINE [Suspect]
     Route: 042
  3. MORPHINE [Suspect]
     Route: 042

REACTIONS (1)
  - BREAST CANCER METASTATIC [None]
